FAERS Safety Report 4916336-1 (Version None)
Quarter: 2006Q1

REPORT INFORMATION
  Report Type: 
  Country: None (occurrence: None)
  Receive Date: 20060217
  Receipt Date: 20051031
  Transmission Date: 20060701
  Serious: Yes (Hospitalization, Other)
  Sender: FDA-Public Use
  Company Number: US-MERCK-0511USA00267

PATIENT
  Age: 71 Year
  Sex: Female
  Weight: 64 kg

DRUGS (18)
  1. VIOXX [Suspect]
     Indication: BACK PAIN
     Route: 048
     Dates: start: 20000801, end: 20040401
  2. VIOXX [Suspect]
     Route: 048
     Dates: start: 20000801, end: 20040401
  3. VIOXX [Suspect]
     Indication: PAIN IN EXTREMITY
     Route: 048
     Dates: start: 20000801, end: 20040401
  4. VIOXX [Suspect]
     Route: 048
     Dates: start: 20000801, end: 20040401
  5. LANOXIN [Concomitant]
     Route: 065
  6. WARFARIN [Concomitant]
     Route: 065
  7. TRAZODONE HYDROCHLORIDE [Concomitant]
     Route: 065
  8. NEXIUM [Concomitant]
     Route: 065
  9. [THERAPY UNSPECIFIED] [Concomitant]
     Route: 065
  10. PREMARIN [Concomitant]
     Route: 065
  11. AMBIEN [Concomitant]
     Route: 065
  12. SYNTHROID [Concomitant]
     Route: 065
  13. ALTACE [Concomitant]
     Route: 065
  14. ACIPHEX [Concomitant]
     Route: 065
  15. NORVASC [Concomitant]
     Route: 065
     Dates: start: 20021009
  16. COUMADIN [Concomitant]
     Indication: THROMBOSIS
     Route: 065
     Dates: start: 20021009
  17. COUMADIN [Concomitant]
     Indication: PULMONARY EMBOLISM
     Route: 065
     Dates: start: 20021009
  18. ZOCOR [Concomitant]
     Route: 065
     Dates: start: 20030812

REACTIONS (18)
  - ABDOMINAL DISTENSION [None]
  - BLOOD CHOLESTEROL INCREASED [None]
  - CARDIAC FAILURE CONGESTIVE [None]
  - CEREBROVASCULAR ACCIDENT [None]
  - CHEST PAIN [None]
  - CORONARY ARTERY DISEASE [None]
  - DEPRESSION [None]
  - DYSPNOEA [None]
  - FLATULENCE [None]
  - GASTROOESOPHAGEAL REFLUX DISEASE [None]
  - GOUT [None]
  - HEADACHE [None]
  - MIGRAINE [None]
  - NAUSEA [None]
  - PULMONARY EMBOLISM [None]
  - RENAL CELL CARCINOMA STAGE UNSPECIFIED [None]
  - SYNCOPE [None]
  - THROMBOSIS [None]
